FAERS Safety Report 5956866-7 (Version None)
Quarter: 2008Q4

REPORT INFORMATION
  Report Type: 
  Country: None (occurrence: None)
  Receive Date: 20081118
  Receipt Date: 20081114
  Transmission Date: 20090506
  Serious: Yes (Hospitalization)
  Sender: FDA-Public Use
  Company Number: US-SANOFI-SYNTHELABO-F01200801607

PATIENT
  Sex: Female

DRUGS (11)
  1. NEUPOGEN [Concomitant]
     Dosage: UNK
  2. LANTUS [Concomitant]
     Dosage: UNK
  3. ZETIA [Concomitant]
     Dosage: UNK
  4. ZOCOR [Concomitant]
     Dosage: UNK
  5. PEPCID [Concomitant]
     Dosage: UNK
  6. MEGACE [Concomitant]
     Dosage: UNK
  7. XRT (RADIATION) [Suspect]
     Indication: RECTAL CANCER
     Dosage: UNK
     Dates: end: 20080512
  8. BEVACIZUMAB [Suspect]
     Route: 065
     Dates: start: 20080415, end: 20080415
  9. FLUOROURACIL [Suspect]
     Dosage: 400MG IV BOLUS FOLLOWED BY 2400 MG/M2 IV DRIP OVER 48HOURS, DAYS 1+ 15
     Route: 042
     Dates: start: 20080908, end: 20080910
  10. LEUCOVORIN CALCIUM [Suspect]
     Route: 041
     Dates: start: 20080908, end: 20080908
  11. OXALIPLATIN [Suspect]
     Indication: RECTAL CANCER
     Route: 065
     Dates: start: 20080908, end: 20080908

REACTIONS (4)
  - INFECTION [None]
  - MUSCULAR WEAKNESS [None]
  - PROCTALGIA [None]
  - RECTAL ABSCESS [None]
